FAERS Safety Report 8460569-7 (Version None)
Quarter: 2012Q2

REPORT INFORMATION
  Report Type: 
  Country: None (occurrence: None)
  Receive Date: 20120622
  Receipt Date: 20120406
  Transmission Date: 20120825
  Serious: No
  Sender: FDA-Public Use
  Company Number: US-ASTRAZENECA-2012SE22972

PATIENT

DRUGS (1)
  1. BRILINTA [Suspect]
     Indication: ACUTE CORONARY SYNDROME
     Dosage: 2 TAB 90 MG
     Route: 048

REACTIONS (2)
  - ADVERSE REACTION [None]
  - DYSPNOEA [None]
